FAERS Safety Report 8558955-X (Version None)
Quarter: 2012Q3

REPORT INFORMATION
  Report Type: 
  Country: None (occurrence: None)
  Receive Date: 20120802
  Receipt Date: 20120723
  Transmission Date: 20120928
  Serious: Yes (Hospitalization)
  Sender: FDA-Public Use
  Company Number: US-009507513-1207USA009885

PATIENT

DRUGS (9)
  1. PEPCID [Suspect]
     Route: 048
  2. ASPIRIN [Suspect]
  3. ZOCOR [Suspect]
     Route: 048
  4. CEFEPIME [Suspect]
  5. PIPERACILLIN AND TAZOBACTAM [Suspect]
  6. NITRO-DUR [Suspect]
  7. VANCOMYCIN [Suspect]
     Route: 042
  8. MEROPENEM [Suspect]
  9. HEPARIN SODIUM [Suspect]

REACTIONS (1)
  - THROMBOCYTOPENIA [None]
